FAERS Safety Report 6826691-3 (Version None)
Quarter: 2010Q3

REPORT INFORMATION
  Report Type: 
  Country: None (occurrence: None)
  Receive Date: 20100709
  Receipt Date: 20100629
  Transmission Date: 20110219
  Serious: Yes (Life-Threatening, Other)
  Sender: FDA-Public Use
  Company Number: FR-PFIZER INC-2010028450

PATIENT
  Age: 26 Year
  Sex: Female
  Weight: 70 kg

DRUGS (1)
  1. REVATIO [Suspect]
     Indication: RAYNAUD'S PHENOMENON
     Dosage: 1 DF, SINGLE
     Dates: start: 20100212, end: 20100212

REACTIONS (4)
  - ANGIOEDEMA [None]
  - FLUSHING [None]
  - HEADACHE [None]
  - THROAT TIGHTNESS [None]
